FAERS Safety Report 8484495-2 (Version None)
Quarter: 2012Q3

REPORT INFORMATION
  Report Type: 
  Country: None (occurrence: None)
  Receive Date: 20120703
  Receipt Date: 20120625
  Transmission Date: 20120928
  Serious: Yes (Other)
  Sender: FDA-Public Use
  Company Number: US-JNJFOC-20120514166

PATIENT
  Sex: Female
  Weight: 53.8 kg

DRUGS (2)
  1. HUMIRA [Concomitant]
     Dates: start: 20100326
  2. INFLIXIMAB, RECOMBINANT [Suspect]
     Indication: CROHN'S DISEASE
     Route: 042
     Dates: start: 20090213, end: 20090401

REACTIONS (1)
  - ADENOCARCINOMA [None]
